FAERS Safety Report 7790658-1 (Version None)
Quarter: 2011Q3

REPORT INFORMATION
  Report Type: 
  Country: None (occurrence: None)
  Receive Date: 20110930
  Receipt Date: 20110919
  Transmission Date: 20111222
  Serious: Yes (Hospitalization, Disabling, Congenital Anomaly, Other)
  Sender: FDA-Public Use
  Company Number: DE-WATSON-2011-14989

PATIENT
  Sex: Female
  Weight: 2.785 kg

DRUGS (4)
  1. ENOXAPARIN [Concomitant]
     Indication: METHYLENETETRAHYDROFOLATE REDUCTASE DEFICIENCY
     Dosage: 40 MG, DAILY
     Route: 064
     Dates: end: 20110614
  2. METOPROLOL TARTRATE [Suspect]
     Indication: VENTRICULAR TACHYCARDIA
     Dosage: 47.5 MG/D REDUCED TO 11.875 MG/D
     Route: 064
     Dates: start: 20101118, end: 20110614
  3. FOLIC ACID [Concomitant]
     Indication: PROPHYLAXIS OF NEURAL TUBE DEFECT
     Dosage: 5 MG, DAILY
     Route: 064
     Dates: start: 20100912, end: 20110512
  4. TAMBOCOR [Suspect]
     Indication: VENTRICULAR TACHYCARDIA
     Dosage: 200 MG/D REDUCED TO 100 MG/D
     Route: 064
     Dates: start: 20101118, end: 20110614

REACTIONS (5)
  - PATENT DUCTUS ARTERIOSUS [None]
  - MACROGLOSSIA [None]
  - SMALL FOR DATES BABY [None]
  - ATRIAL SEPTAL DEFECT [None]
  - CONGENITAL HYPOTHYROIDISM [None]
